FAERS Safety Report 6154066-1 (Version None)
Quarter: 2009Q2

REPORT INFORMATION
  Report Type: 
  Country: None (occurrence: None)
  Receive Date: 20090414
  Receipt Date: 20090407
  Transmission Date: 20091009
  Serious: No
  Sender: FDA-Public Use
  Company Number: JP-B.I. PHARMACEUTICALS,INC./RIDGEFIELD-2009-BP-03769NB

PATIENT
  Sex: Male
  Weight: 53 kg

DRUGS (5)
  1. BI-SIFROL TABLETS [Suspect]
     Indication: PARKINSON'S DISEASE
     Dosage: 3MG
     Route: 048
     Dates: start: 20081209
  2. MADOPAR [Concomitant]
     Indication: PARKINSON'S DISEASE
     Dosage: 6ANZ
     Route: 048
     Dates: start: 20081104
  3. ALOSENN [Concomitant]
     Indication: CONSTIPATION
     Dosage: 2G
     Route: 048
     Dates: start: 20081104
  4. PURSENNID [Concomitant]
     Indication: CONSTIPATION
     Dosage: 1ANZ
     Route: 048
     Dates: start: 20081104
  5. MYSLEE [Concomitant]
     Indication: INSOMNIA
     Dosage: 10MG
     Route: 048
     Dates: start: 20081104

REACTIONS (1)
  - OEDEMA PERIPHERAL [None]
